FAERS Safety Report 8462973-X (Version None)
Quarter: 2012Q2

REPORT INFORMATION
  Report Type: 
  Country: None (occurrence: None)
  Receive Date: 20120625
  Receipt Date: 20120612
  Transmission Date: 20120825
  Serious: Yes (Congenital Anomaly)
  Sender: FDA-Public Use
  Company Number: US-VIIV HEALTHCARE LIMITED-A0982043A

PATIENT
  Sex: Male
  Weight: 1.4 kg

DRUGS (3)
  1. KALETRA [Suspect]
     Indication: ANTIRETROVIRAL THERAPY
     Dosage: 4TAB PER DAY
     Route: 064
     Dates: start: 20111017, end: 20120308
  2. COMBIVIR [Suspect]
     Indication: ANTIRETROVIRAL THERAPY
     Dosage: 2TAB PER DAY
     Route: 064
     Dates: start: 20111017
  3. KALETRA [Suspect]
     Dosage: 6TAB SINGLE DOSE
     Route: 064
     Dates: start: 20120308

REACTIONS (3)
  - RENAL CYST [None]
  - LIVE BIRTH [None]
  - FOETAL EXPOSURE DURING PREGNANCY [None]
